FAERS Safety Report 7704956-0 (Version None)
Quarter: 2011Q3

REPORT INFORMATION
  Report Type: 
  Country: None (occurrence: None)
  Receive Date: 20110823
  Receipt Date: 20110819
  Transmission Date: 20111222
  Serious: No
  Sender: FDA-Public Use
  Company Number: US-PFIZER INC-2011192413

PATIENT
  Sex: Female
  Weight: 68.027 kg

DRUGS (2)
  1. TYLENOL-500 [Concomitant]
     Dosage: UNK
  2. ADVIL LIQUI-GELS [Suspect]
     Indication: PAIN
     Dosage: 200 MG, 1X/DAY
     Route: 048
     Dates: start: 20110818, end: 20110818

REACTIONS (2)
  - HYPOAESTHESIA ORAL [None]
  - HYPOAESTHESIA [None]
